FAERS Safety Report 17022513 (Version 1)
Quarter: 2019Q4

REPORT INFORMATION
  Report Type: Spontaneous
  Country: US (occurrence: US)
  Receive Date: 20191112
  Receipt Date: 20191112
  Transmission Date: 20200122
  Serious: Yes (Other)
  Sender: FDA-Public Use
  Company Number: US-VERTEX PHARMACEUTICALS-2018-002682

PATIENT
  Age: 45 Year
  Sex: Male

DRUGS (15)
  1. FLONASE                            /00908302/ [Concomitant]
     Active Substance: MOMETASONE FUROATE
  2. AMICAN [Concomitant]
  3. AZITHROMYCIN ANHYDROUS. [Concomitant]
     Active Substance: AZITHROMYCIN ANHYDROUS
  4. HYDROXYZINE [Concomitant]
     Active Substance: HYDROXYZINE HYDROCHLORIDE
     Dosage: UNK
  5. NOVOLOG [Concomitant]
     Active Substance: INSULIN ASPART
  6. AMICAR [Concomitant]
     Active Substance: AMINOCAPROIC ACID
     Dosage: UNK
  7. CAYSTON [Concomitant]
     Active Substance: AZTREONAM
     Dosage: UNK
  8. DILTIAZEM. [Concomitant]
     Active Substance: DILTIAZEM
  9. CREON [Concomitant]
     Active Substance: PANCRELIPASE AMYLASE\PANCRELIPASE LIPASE\PANCRELIPASE PROTEASE
     Dosage: UNK
  10. SYMDEKO [Suspect]
     Active Substance: IVACAFTOR\TEZACAFTOR
     Indication: CYSTIC FIBROSIS
     Dosage: 1 DOSAGE FORM, BID (100MG TEZACAFTOR/150MG IVACAFTOR AM; 150MG IVACAFTOR PM)
     Route: 048
     Dates: start: 20180404
  11. ALBUTEROL                          /00139501/ [Concomitant]
     Active Substance: ALBUTEROL
     Dosage: UNK
  12. OMEPRAZOLE. [Concomitant]
     Active Substance: OMEPRAZOLE
     Dosage: UNK
  13. PULMOZYME [Concomitant]
     Active Substance: DORNASE ALFA
     Dosage: UNK
  14. TOUJEO [Concomitant]
     Active Substance: INSULIN GLARGINE
  15. ZOFRAN [Concomitant]
     Active Substance: ONDANSETRON HYDROCHLORIDE
     Dosage: UNK

REACTIONS (4)
  - Decreased appetite [Unknown]
  - Nausea [Unknown]
  - Pulmonary function test decreased [Not Recovered/Not Resolved]
  - Haemoptysis [Unknown]

NARRATIVE: CASE EVENT DATE: 201804
